FAERS Safety Report 22944352 (Version 6)
Quarter: 2024Q1

REPORT INFORMATION
  Report Type: Spontaneous
  Country: CL (occurrence: CL)
  Receive Date: 20230914
  Receipt Date: 20240214
  Transmission Date: 20240410
  Serious: Yes (Other)
  Sender: FDA-Public Use
  Company Number: CL-SA-SAC20230911000758

PATIENT

DRUGS (6)
  1. LARONIDASE [Suspect]
     Active Substance: LARONIDASE
     Indication: Mucopolysaccharidosis I
     Dosage: 2 DF(VIALS), QW
     Route: 042
     Dates: start: 20230423
  2. LARONIDASE [Suspect]
     Active Substance: LARONIDASE
     Dosage: 3 DF, QW
     Route: 042
     Dates: start: 2023
  3. LARONIDASE [Suspect]
     Active Substance: LARONIDASE
     Dosage: 3 DF, QW
     Route: 042
  4. NAGLAZYME [Suspect]
     Active Substance: GALSULFASE
     Indication: Product used for unknown indication
     Route: 065
  5. CHLORPHENIRAMINE MALEATE [Concomitant]
     Active Substance: CHLORPHENIRAMINE MALEATE
     Indication: Product used for unknown indication
     Dosage: UNK
  6. BETAMETHASONE [Concomitant]
     Active Substance: BETAMETHASONE\BETAMETHASONE DIPROPIONATE
     Indication: Product used for unknown indication
     Dosage: UNK

REACTIONS (13)
  - Respiratory distress [Recovered/Resolved]
  - Pneumonia [Recovered/Resolved]
  - Cough [Recovered/Resolved]
  - Decreased appetite [Recovered/Resolved]
  - Somnolence [Recovered/Resolved]
  - Pyrexia [Recovered/Resolved]
  - Dyspnoea [Recovered/Resolved]
  - Food intolerance [Recovered/Resolved]
  - Secretion discharge [Recovered/Resolved]
  - Rash macular [Recovered/Resolved]
  - Blood pressure increased [Unknown]
  - Urticaria [Recovered/Resolved]
  - Poor venous access [Unknown]

NARRATIVE: CASE EVENT DATE: 20230904
